FAERS Safety Report 23182870 (Version 1)
Quarter: 2023Q4

REPORT INFORMATION
  Report Type: Spontaneous
  Country: US (occurrence: US)
  Receive Date: 20231114
  Receipt Date: 20231114
  Transmission Date: 20240109
  Serious: No
  Sender: FDA-Public Use
  Company Number: US-SA-SAC20231108001455

PATIENT
  Age: 77 Year
  Sex: Female
  Weight: 57.6 kg

DRUGS (2)
  1. DUPIXENT [Suspect]
     Active Substance: DUPILUMAB
     Indication: Lichen planus
     Dosage: 300 MG EVERY 2 WEEKS
     Route: 058
     Dates: start: 202209
  2. DUPIXENT [Suspect]
     Active Substance: DUPILUMAB
     Indication: Dermatitis atopic

REACTIONS (9)
  - Respiratory syncytial virus infection [Unknown]
  - Cough [Unknown]
  - Rhinorrhoea [Unknown]
  - Headache [Unknown]
  - Night sweats [Unknown]
  - Oropharyngeal pain [Unknown]
  - Asthenia [Unknown]
  - Productive cough [Unknown]
  - Product use in unapproved indication [Unknown]

NARRATIVE: CASE EVENT DATE: 20220901
